FAERS Safety Report 23701076 (Version 1)
Quarter: 2024Q2

REPORT INFORMATION
  Report Type: Spontaneous
  Country: US (occurrence: US)
  Receive Date: 20240403
  Receipt Date: 20240403
  Transmission Date: 20240715
  Serious: Yes (Hospitalization)
  Sender: FDA-Public Use
  Company Number: US-ALVOGEN-2023089283

PATIENT
  Sex: Male

DRUGS (3)
  1. MACROBID [Suspect]
     Active Substance: NITROFURANTOIN\NITROFURANTOIN MONOHYDRATE
     Indication: Product used for unknown indication
  2. OFEV [Suspect]
     Active Substance: NINTEDANIB
     Indication: Idiopathic pulmonary fibrosis
     Dosage: 100 MILLIGRAM (S), 1 IN 12 HOUR
     Route: 048
     Dates: end: 20230518
  3. OFEV [Suspect]
     Active Substance: NINTEDANIB
     Indication: Idiopathic pulmonary fibrosis
     Dosage: 100 MILLIGRAM (S), 1 IN 12 HOUR
     Route: 048
     Dates: start: 20230728

REACTIONS (12)
  - Cystitis [Not Recovered/Not Resolved]
  - Gastrointestinal motility disorder [Not Recovered/Not Resolved]
  - Abdominal tenderness [Recovered/Resolved]
  - Gastrointestinal disorder [Unknown]
  - Fatigue [Unknown]
  - Ear infection [Unknown]
  - Urinary tract infection [Recovering/Resolving]
  - Procedural pain [Recovering/Resolving]
  - Weight decreased [Recovering/Resolving]
  - Sinusitis [Unknown]
  - Nausea [Recovered/Resolved]
  - Headache [Not Recovered/Not Resolved]

NARRATIVE: CASE EVENT DATE: 20220909
